FAERS Safety Report 6875962-3 (Version None)
Quarter: 2010Q2

REPORT INFORMATION
  Report Type: 
  Country: None (occurrence: None)
  Receive Date: 20100616
  Receipt Date: 20100331
  Transmission Date: 20101027
  Serious: No
  Sender: FDA-Public Use
  Company Number: DSA_42871_2010

PATIENT
  Sex: Male

DRUGS (3)
  1. XENAZINE [Suspect]
     Indication: HUNTINGTON'S CHOREA
     Dosage: (12.5 MG QD ORAL)
     Route: 048
     Dates: start: 20100319, end: 20100301
  2. PAXIL [Suspect]
     Indication: DRUG USE FOR UNKNOWN INDICATION
     Dosage: (DF)
  3. PRILOSEC [Concomitant]

REACTIONS (5)
  - ASTHENIA [None]
  - FATIGUE [None]
  - FEELING ABNORMAL [None]
  - SLUGGISHNESS [None]
  - SOMNOLENCE [None]
